FAERS Safety Report 7008001-4 (Version None)
Quarter: 2010Q3

REPORT INFORMATION
  Report Type: 
  Country: None (occurrence: None)
  Receive Date: 20100922
  Receipt Date: 20100915
  Transmission Date: 20110219
  Serious: Yes (Hospitalization, Other)
  Sender: FDA-Public Use
  Company Number: US-SANOFI-AVENTIS-2010SA044183

PATIENT
  Age: 49 Year
  Sex: Female
  Weight: 82.55 kg

DRUGS (7)
  1. LANTUS [Suspect]
     Indication: TYPE 2 DIABETES MELLITUS
     Dosage: DOSE:45 UNIT(S)
     Route: 058
     Dates: start: 20090824
  2. SOLOSTAR [Suspect]
     Indication: TYPE 2 DIABETES MELLITUS
     Dates: start: 20090824
  3. BENICAR [Concomitant]
     Indication: HYPERTENSION
  4. FOLIC ACID [Concomitant]
     Indication: SARCOIDOSIS
     Dosage: 2 TABLETS DAILY
     Dates: start: 20090824
  5. METHOTREXATE [Concomitant]
     Indication: SARCOIDOSIS
     Dosage: 8 TABLETS EVERY WEEKLY
     Dates: start: 20090824
  6. ASPIRIN [Concomitant]
     Dates: start: 20100510
  7. CELEXA [Concomitant]

REACTIONS (3)
  - HYPERGLYCAEMIA [None]
  - SARCOIDOSIS [None]
  - VISUAL IMPAIRMENT [None]
